FAERS Safety Report 8492885-7 (Version None)
Quarter: 2012Q2

REPORT INFORMATION
  Report Type: 
  Country: None (occurrence: None)
  Receive Date: 20120628
  Receipt Date: 20120619
  Transmission Date: 20120825
  Serious: No
  Sender: FDA-Public Use
  Company Number: B0810292A

PATIENT
  Age: 64 Year
  Sex: Male

DRUGS (2)
  1. SUCRALFATE [Concomitant]
  2. CALCIUM CARBONATE [Suspect]
     Indication: GASTROOESOPHAGEAL REFLUX DISEASE
     Dosage: ORAL
     Route: 048

REACTIONS (12)
  - BLOOD SODIUM DECREASED [None]
  - BLOOD PARATHYROID HORMONE INCREASED [None]
  - HYPERCALCAEMIA [None]
  - FALL [None]
  - BLOOD CREATININE INCREASED [None]
  - ALKALOSIS [None]
  - BLOOD ALBUMIN DECREASED [None]
  - MILK-ALKALI SYNDROME [None]
  - ASTHENIA [None]
  - BLOOD POTASSIUM DECREASED [None]
  - INCORRECT DOSE ADMINISTERED [None]
  - ATRIOVENTRICULAR BLOCK SECOND DEGREE [None]
